FAERS Safety Report 19734644 (Version 5)
Quarter: 2022Q1

REPORT INFORMATION
  Report Type: Spontaneous
  Country: JP (occurrence: JP)
  Receive Date: 20210823
  Receipt Date: 20220324
  Transmission Date: 20220424
  Serious: Yes (Life-Threatening, Hospitalization, Other)
  Sender: FDA-Public Use
  Company Number: JP-CHUGAI-2021010732

PATIENT
  Age: 69 Year
  Sex: Male
  Weight: 71 kg

DRUGS (2)
  1. TECENTRIQ [Suspect]
     Active Substance: ATEZOLIZUMAB
     Indication: Hepatocellular carcinoma
     Route: 041
     Dates: start: 20210513, end: 20210715
  2. AVASTIN [Suspect]
     Active Substance: BEVACIZUMAB
     Indication: Hepatocellular carcinoma
     Dosage: 1000 MILLIGRAM, ONCE/3WEEKS
     Route: 041
     Dates: start: 20210513, end: 20210715

REACTIONS (4)
  - Atrioventricular block [Recovered/Resolved]
  - Myocardial infarction [Recovering/Resolving]
  - Cardiac failure [Recovered/Resolved]
  - Pneumonia [Recovered/Resolved]

NARRATIVE: CASE EVENT DATE: 20210810
